FAERS Safety Report 8781986 (Version 2)
Quarter: 2013Q2

REPORT INFORMATION
  Report Type: Spontaneous
  Country: US (occurrence: US)
  Receive Date: 20120913
  Receipt Date: 20130422
  Transmission Date: 20140414
  Serious: Yes (Hospitalization, Other)
  Sender: FDA-Public Use
  Company Number: US-BAYER-2012-094945

PATIENT
  Age: 40 Year
  Sex: Female
  Weight: 74.83 kg

DRUGS (28)
  1. OCELLA [Suspect]
     Indication: CONTRACEPTION
     Dosage: UNK
     Dates: start: 2005, end: 2010
  2. YASMIN [Suspect]
     Indication: CONTRACEPTION
     Dosage: UNK
     Dates: start: 2005, end: 2010
  3. YAZ [Suspect]
     Indication: CONTRACEPTION
     Dosage: UNK
  4. BACTRIM [Concomitant]
     Indication: SINUS HEADACHE
     Route: 048
  5. IBUPROFEN [Concomitant]
     Route: 048
  6. PROMETHAZINE [Concomitant]
     Dosage: 25 MG, Q (EVERY) 6 TO 8 H (HOURS) PRN (AS NEEDED)
     Route: 048
  7. CLARITHROMYCIN [Concomitant]
     Dosage: 500 MG, BID
     Route: 048
  8. AMOXICILLIN [Concomitant]
     Dosage: UNK UNK, BID
     Route: 048
  9. BENZONATATE [Concomitant]
     Indication: COUGH
     Dosage: ONE QID, PRN
  10. FLUCONAZOLE [Concomitant]
     Dosage: 150 MG, TODAY
     Route: 048
  11. LISINOPRIL [Concomitant]
     Indication: HYPERTENSION
     Dosage: 20 MG, DAILY
     Route: 048
  12. CYMBALTA [Concomitant]
     Dosage: 60 MG, DAILY
     Route: 048
  13. PROZAC [Concomitant]
     Dosage: 20 MG 3 CAPS; 20 MG CAPSULES 2 QD (DAILY)
     Route: 048
  14. LORAZEPAM [Concomitant]
     Dosage: 1 MG, TID
     Route: 048
  15. LORAZEPAM [Concomitant]
     Dosage: 0.5 MG, TID
     Route: 048
  16. VICODIN [Concomitant]
     Indication: PAIN
     Dosage: 7.5 MG/750 MG TABS (TABLETS), ? TO 1 QID PRN
     Route: 048
  17. NEXIUM [Concomitant]
     Indication: GASTROOESOPHAGEAL REFLUX DISEASE
     Dosage: 40 MG, DAILY
     Route: 048
  18. METADATE CD [Concomitant]
     Dosage: 20 MG, DAILY
     Route: 048
  19. DIPHENHYDRAMINE [Concomitant]
     Dosage: 25 MG, DAILY
     Route: 048
  20. FEXOFENADINE [Concomitant]
     Dosage: 180 MG, DAILY
     Route: 048
  21. LEVAQUIN [Concomitant]
     Dosage: 500 MG, DAILY
  22. NIMODIPINE [Concomitant]
  23. DILANTIN [Concomitant]
  24. AMICAR [Concomitant]
  25. COLACE [Concomitant]
  26. DECADRON [Concomitant]
  27. RANITIDINE [Concomitant]
  28. OXYCODONE [Concomitant]

REACTIONS (9)
  - Cholecystectomy [None]
  - Biliary dyskinesia [None]
  - Intracranial aneurysm [None]
  - Conjunctival haemorrhage [None]
  - Mental disorder [None]
  - Injury [None]
  - Pain [None]
  - Pain [None]
  - Subarachnoid haemorrhage [None]
